FAERS Safety Report 8178260 (Version 5)
Quarter: 2012Q4

REPORT INFORMATION
  Report Type: 
  Country: US (occurrence: US)
  Receive Date: 20111012
  Receipt Date: 20121112
  Transmission Date: 20130627
  Serious: Yes (Other)
  Sender: FDA-Public Use
  Company Number: US-ASTRAZENECA-2011SE59716

PATIENT
  Age: 67 Year
  Sex: Male
  Weight: 82.6 kg

DRUGS (38)
  1. TOPROL XL [Suspect]
     Route: 048
  2. SEROQUEL [Suspect]
     Indication: DEPRESSION
     Route: 048
  3. SEROQUEL [Suspect]
     Indication: ANXIETY
     Route: 048
  4. SEROQUEL [Suspect]
     Indication: DEPRESSION
     Route: 048
  5. SEROQUEL [Suspect]
     Indication: ANXIETY
     Route: 048
  6. SEROQUEL [Suspect]
     Indication: DEPRESSION
     Route: 048
     Dates: start: 2005, end: 201204
  7. SEROQUEL [Suspect]
     Indication: ANXIETY
     Route: 048
     Dates: start: 2005, end: 201204
  8. SEROQUEL [Suspect]
     Indication: DEPRESSION
     Route: 048
     Dates: start: 201209
  9. SEROQUEL [Suspect]
     Indication: ANXIETY
     Route: 048
     Dates: start: 201209
  10. CRESTOR [Suspect]
     Route: 048
  11. ALBUTEROL [Concomitant]
     Indication: COUGH
     Dosage: QID, PRN
  12. METFORMIN [Concomitant]
     Indication: DIABETES MELLITUS
     Route: 048
     Dates: start: 2009
  13. CLONAZEPAM [Concomitant]
     Indication: ANXIETY
  14. CLONAZEPAM [Concomitant]
     Indication: ANXIETY
     Route: 048
  15. SYNTHROID [Concomitant]
  16. EFFEXOR XR [Concomitant]
  17. INSULIN [Concomitant]
  18. INHALERS [Concomitant]
  19. OXYGEN THERAPY [Concomitant]
  20. NEBULIZERS [Concomitant]
  21. REGLAN [Concomitant]
     Indication: GASTRIC DISORDER
     Route: 048
  22. PEPCID [Concomitant]
     Indication: GASTRIC DISORDER
     Route: 048
  23. CARAFATE [Concomitant]
     Indication: GASTRIC DISORDER
     Route: 048
  24. PRILOSEC OTC [Concomitant]
     Indication: GASTRIC DISORDER
     Route: 048
  25. RANITIDINE [Concomitant]
     Indication: GASTRIC DISORDER
     Route: 048
  26. ASPIRIN [Concomitant]
     Route: 048
  27. LOSARTAN [Concomitant]
     Route: 048
  28. METOPROLOL [Concomitant]
     Route: 048
  29. NIFEDICAL XL [Concomitant]
     Route: 048
  30. LANTUS SOLOSTAR [Concomitant]
     Dosage: 30 UNITS, HS
     Route: 058
  31. HUMALOG [Concomitant]
     Dosage: 10 UNITS, DAILY, SQ
  32. EFFEXOR [Concomitant]
     Indication: DEPRESSION
     Route: 048
     Dates: start: 2006
  33. SPIRIVA [Concomitant]
  34. PROAIR [Concomitant]
  35. FLUTICASONE [Concomitant]
     Dosage: ONCE DAILY, TWO SPRAYS IN EACH NOSTRILS
     Dates: start: 2009
  36. FLOVENT [Concomitant]
  37. VITAMIN B COMPLEX [Concomitant]
     Route: 048
  38. VITAMIN B [Concomitant]

REACTIONS (7)
  - Intracranial aneurysm [Unknown]
  - Chronic obstructive pulmonary disease [Unknown]
  - Gastric disorder [Unknown]
  - Fall [Unknown]
  - Confusional state [Unknown]
  - Drug withdrawal syndrome [Unknown]
  - Memory impairment [Unknown]
